FAERS Safety Report 25757574 (Version 1)
Quarter: 2025Q3

REPORT INFORMATION
  Report Type: Spontaneous
  Country: EU (occurrence: EU)
  Receive Date: 20250903
  Receipt Date: 20250903
  Transmission Date: 20251020
  Serious: Yes (Death, Hospitalization)
  Sender: PFIZER
  Company Number: EU-ROCHE-10000362924

PATIENT
  Age: 28 Year
  Sex: Male
  Weight: 90.9 kg

DRUGS (7)
  1. BEVACIZUMAB [Suspect]
     Active Substance: BEVACIZUMAB
     Indication: Hepatocellular carcinoma
     Dosage: 15 MG/KG, EVERY 3 WEEKS
     Route: 042
     Dates: start: 20240626
  2. ATEZOLIZUMAB [Suspect]
     Active Substance: ATEZOLIZUMAB
     Indication: Hepatocellular carcinoma
     Dosage: 1200 MG, EVERY 3 WEEKS
     Route: 042
     Dates: start: 20240626
  3. ALBUTEROL [Concomitant]
     Active Substance: ALBUTEROL
     Indication: Asthma
     Dosage: 0.1 MG, 4X/DAY
     Dates: start: 1996
  4. FUNGIZONE [Concomitant]
     Active Substance: AMPHOTERICIN B
  5. HALDOL [Concomitant]
     Active Substance: HALOPERIDOL
     Indication: Product used for unknown indication
     Dosage: UNK UNK, 3X/DAY
     Dates: start: 20240717
  6. TIENAM [CILASTATIN;IMIPENEM] [Concomitant]
     Indication: Product used for unknown indication
     Dates: start: 20240705, end: 20240708
  7. MOVICOL [Concomitant]
     Active Substance: POLYETHYLENE GLYCOL 3350\POTASSIUM CHLORIDE\SODIUM BICARBONATE\SODIUM CHLORIDE
     Indication: Constipation
     Dates: start: 20240626, end: 20240626

REACTIONS (3)
  - Hypercalcaemia of malignancy [Recovered/Resolved]
  - Malignant neoplasm progression [Fatal]
  - Hepatocellular carcinoma [Fatal]

NARRATIVE: CASE EVENT DATE: 20240731
